FAERS Safety Report 8130090-4 (Version None)
Quarter: 2012Q1

REPORT INFORMATION
  Report Type: 
  Country: None (occurrence: None)
  Receive Date: 20120210
  Receipt Date: 20120209
  Transmission Date: 20120608
  Serious: Yes (Life-Threatening)
  Sender: FDA-Public Use
  Company Number: DK-PFIZER INC-2011244273

PATIENT
  Age: 51 Year
  Sex: Female

DRUGS (3)
  1. LYRICA [Suspect]
     Indication: NEURALGIA
     Dosage: 25 MG, 1X/DAY
     Route: 048
     Dates: start: 20110921, end: 20110921
  2. PARACETAMOL [Concomitant]
     Dosage: 1000 MG, 1X/DAY
  3. IBUPROFEN [Concomitant]
     Dosage: 400 MG, 1X/DAY

REACTIONS (2)
  - CEREBRAL THROMBOSIS [None]
  - ANXIETY [None]
